FAERS Safety Report 15089376 (Version 3)
Quarter: 2025Q3

REPORT INFORMATION
  Report Type: Spontaneous
  Country: EU (occurrence: EU)
  Receive Date: 20180629
  Receipt Date: 20250823
  Transmission Date: 20251021
  Serious: Yes (Other)
  Sender: AUROBINDO
  Company Number: EU-AUROBINDO-AUR-APL-2018-033252

PATIENT
  Age: 59 Year
  Sex: Male

DRUGS (1)
  1. PRAVASTATIN [Suspect]
     Active Substance: PRAVASTATIN
     Indication: Hypercholesterolaemia
     Route: 065

REACTIONS (3)
  - Tendon rupture [Recovered/Resolved]
  - Muscle rupture [Recovered/Resolved]
  - Adverse event [Unknown]
